FAERS Safety Report 18432934 (Version 3)
Quarter: 2022Q3

REPORT INFORMATION
  Report Type: Spontaneous
  Country: CO (occurrence: CO)
  Receive Date: 20201027
  Receipt Date: 20220804
  Transmission Date: 20221026
  Serious: Yes (Other)
  Sender: FDA-Public Use
  Company Number: CO-PFIZER INC-2020408573

PATIENT
  Age: 8 Year
  Sex: Male

DRUGS (2)
  1. GENOTROPIN [Suspect]
     Active Substance: SOMATROPIN
     Indication: Growth hormone deficiency
     Dosage: UNK
     Dates: end: 201911
  2. GENOTROPIN [Suspect]
     Active Substance: SOMATROPIN
     Dosage: 0.8 MG
     Route: 058

REACTIONS (1)
  - Ankylosing spondylitis [Recovered/Resolved]

NARRATIVE: CASE EVENT DATE: 20201001
